FAERS Safety Report 24686954 (Version 5)
Quarter: 2025Q2

REPORT INFORMATION
  Report Type: Spontaneous
  Country: US (occurrence: US)
  Receive Date: 20241202
  Receipt Date: 20250529
  Transmission Date: 20250717
  Serious: No
  Sender: ROCHE
  Company Number: US-ROCHE-10000143900

PATIENT
  Age: 21 Year
  Sex: Male
  Weight: 71.21 kg

DRUGS (3)
  1. HEMLIBRA [Suspect]
     Active Substance: EMICIZUMAB-KXWH
     Indication: Factor VIII deficiency
     Dosage: STRENGTH: 105MG/0.7ML
     Route: 058
     Dates: start: 202409
  2. ADVATE INJECTION [Concomitant]
  3. ADVATE INJECTION [Concomitant]

REACTIONS (8)
  - Haemorrhage [Recovered/Resolved]
  - Gastric haemorrhage [Unknown]
  - Blood urine present [Unknown]
  - Haemorrhage [Recovered/Resolved]
  - Off label use [Unknown]
  - Haemorrhage [Recovered/Resolved]
  - Haemorrhage [Unknown]
  - Haemorrhage [Unknown]

NARRATIVE: CASE EVENT DATE: 20250303
